FAERS Safety Report 12072012 (Version 1)
Quarter: 2016Q1

REPORT INFORMATION
  Report Type: Spontaneous
  Country: US (occurrence: None)
  Receive Date: 20160211
  Receipt Date: 20160211
  Transmission Date: 20160526
  Serious: Yes (Hospitalization)
  Sender: FDA-Public Use
  Company Number: None

PATIENT
  Age: 59 Year
  Sex: Female
  Weight: 49 kg

DRUGS (1)
  1. LISINOPRIL/HCTZ 20/25MG [Suspect]
     Active Substance: HYDROCHLOROTHIAZIDE\LISINOPRIL
     Indication: HYPERTENSION
     Dosage: LESS THAN 1 MONTH 0.5 TAB QD ORAL
     Route: 048

REACTIONS (3)
  - Dyspnoea [None]
  - Throat tightness [None]
  - Swollen tongue [None]

NARRATIVE: CASE EVENT DATE: 20160120
